FAERS Safety Report 15076681 (Version 1)
Quarter: 2018Q2

REPORT INFORMATION
  Report Type: Spontaneous
  Country: JP (occurrence: JP)
  Receive Date: 20180627
  Receipt Date: 20180627
  Transmission Date: 20180711
  Serious: Yes (Other)
  Sender: FDA-Public Use
  Company Number: JP-PFIZER INC-2018253917

PATIENT

DRUGS (2)
  1. VFEND [Suspect]
     Active Substance: VORICONAZOLE
     Indication: BRONCHOPULMONARY ASPERGILLOSIS
     Dosage: UNK
  2. GEMCITABINE HYDROCHLORIDE. [Interacting]
     Active Substance: GEMCITABINE HYDROCHLORIDE
     Dosage: UNK

REACTIONS (2)
  - Altered state of consciousness [Unknown]
  - Drug interaction [Unknown]
